FAERS Safety Report 6896042-7 (Version None)
Quarter: 2010Q3

REPORT INFORMATION
  Report Type: 
  Country: None (occurrence: None)
  Receive Date: 20100802
  Receipt Date: 20100721
  Transmission Date: 20110219
  Serious: Yes (Hospitalization)
  Sender: FDA-Public Use
  Company Number: A0808584A

PATIENT
  Age: 57 Year
  Sex: Male
  Weight: 122.7 kg

DRUGS (7)
  1. AVANDIA [Suspect]
     Dosage: 8MG PER DAY
     Route: 048
     Dates: start: 20031201, end: 20070801
  2. AVANDARYL [Suspect]
     Route: 048
     Dates: start: 20070801, end: 20080901
  3. CYMBALTA [Concomitant]
  4. NEURONTIN [Concomitant]
  5. LOTENSIN [Concomitant]
  6. CYMBALTA [Concomitant]
  7. ZOCOR [Concomitant]

REACTIONS (7)
  - BLINDNESS UNILATERAL [None]
  - BRAIN INJURY [None]
  - CARDIAC DISORDER [None]
  - CARDIAC FAILURE CONGESTIVE [None]
  - CEREBROVASCULAR ACCIDENT [None]
  - MYOCARDIAL INFARCTION [None]
  - TRANSIENT ISCHAEMIC ATTACK [None]
